FAERS Safety Report 8540525-0 (Version None)
Quarter: 2012Q3

REPORT INFORMATION
  Report Type: 
  Country: None (occurrence: None)
  Receive Date: 20120713
  Receipt Date: 20120628
  Transmission Date: 20120928
  Serious: Yes (Hospitalization)
  Sender: FDA-Public Use
  Company Number: TCI2012A03462

PATIENT
  Age: 73 Year
  Sex: Female

DRUGS (4)
  1. INSULINS AND ANALOGUES [Concomitant]
  2. ACTOS [Suspect]
     Indication: TYPE 2 DIABETES MELLITUS
     Dosage: 15 MG (15 MG, 1 D), PER ORAL
     Route: 048
     Dates: start: 20091117, end: 20110208
  3. BIGUANIDES [Concomitant]
  4. SULFONAMIDES, UREA DERIVATIVES [Concomitant]

REACTIONS (1)
  - SPINAL COMPRESSION FRACTURE [None]
